FAERS Safety Report 9849130 (Version 1)
Quarter: 2014Q1

REPORT INFORMATION
  Report Type: Spontaneous
  Country: US (occurrence: None)
  Receive Date: 20140124
  Receipt Date: 20140124
  Transmission Date: 20141002
  Serious: Yes (Hospitalization)
  Sender: FDA-Public Use
  Company Number: None

PATIENT
  Age: 50 Year
  Sex: Male
  Weight: 192.6 kg

DRUGS (2)
  1. PRADAXA [Suspect]
     Route: 048
     Dates: start: 201307, end: 20130809
  2. ASPIRIN 81 MG [Suspect]
     Dates: start: 20130809

REACTIONS (1)
  - Rectal haemorrhage [None]
